FAERS Safety Report 6939019-5 (Version None)
Quarter: 2010Q3

REPORT INFORMATION
  Report Type: 
  Country: None (occurrence: None)
  Receive Date: 20100824
  Receipt Date: 20100818
  Transmission Date: 20110219
  Serious: Yes (Life-Threatening, Disabling)
  Sender: FDA-Public Use
  Company Number: JP-BAYER-200810655BYL

PATIENT
  Age: 75 Year
  Sex: Male
  Weight: 53 kg

DRUGS (8)
  1. NEXAVAR [Suspect]
     Indication: RENAL CELL CARCINOMA STAGE IV
     Dosage: TOTAL DAILY DOSE: 800 MG  UNIT DOSE: 200 MG
     Route: 048
     Dates: start: 20080318, end: 20080408
  2. NEXAVAR [Suspect]
     Dosage: UNIT DOSE: 200 MG
     Route: 048
     Dates: start: 20080513, end: 20080619
  3. ALLELOCK [Concomitant]
     Indication: ONCOLOGIC COMPLICATION
     Route: 048
     Dates: start: 20080318, end: 20080408
  4. NIPOLAZIN [Concomitant]
     Indication: ONCOLOGIC COMPLICATION
     Dosage: TOTAL DAILY DOSE: 3 MG  UNIT DOSE: 3 MG
     Route: 048
     Dates: start: 20080318, end: 20080408
  5. PREDONINE [Concomitant]
     Indication: RENAL CELL CARCINOMA STAGE IV
     Route: 048
     Dates: start: 20080318, end: 20080408
  6. MEVALOTIN [Concomitant]
     Indication: ONCOLOGIC COMPLICATION
     Route: 048
     Dates: start: 20080318, end: 20080408
  7. LENDORMIN [Concomitant]
     Indication: ONCOLOGIC COMPLICATION
     Dosage: TOTAL DAILY DOSE: 0.25 MG  UNIT DOSE: 0.25 MG
     Route: 048
     Dates: start: 20080318, end: 20080408
  8. BLOPRESS [Concomitant]
     Indication: HYPERTENSION
     Route: 048

REACTIONS (2)
  - AORTIC DISSECTION [None]
  - PALMAR-PLANTAR ERYTHRODYSAESTHESIA SYNDROME [None]
